FAERS Safety Report 9377177 (Version 1)
Quarter: 2013Q3

REPORT INFORMATION
  Report Type: Spontaneous
  Country: DE (occurrence: JP)
  Receive Date: 20130701
  Receipt Date: 20130701
  Transmission Date: 20140515
  Serious: Yes (Life-Threatening)
  Sender: FDA-Public Use
  Company Number: JP-BRACCO-006981

PATIENT
  Age: 81 Year
  Sex: Male
  Weight: 73 kg

DRUGS (1)
  1. IOPAMIRON [Suspect]
     Indication: COMPUTERISED TOMOGRAM
     Dosage: 4 ML/SEC
     Route: 042
     Dates: start: 20130405, end: 20130405

REACTIONS (1)
  - Anaphylactic shock [Recovered/Resolved]
